FAERS Safety Report 7559925-0 (Version None)
Quarter: 2011Q2

REPORT INFORMATION
  Report Type: 
  Country: None (occurrence: None)
  Receive Date: 20110621
  Receipt Date: 20110607
  Transmission Date: 20111010
  Serious: Yes (Hospitalization)
  Sender: FDA-Public Use
  Company Number: PHHY2011CA50219

PATIENT
  Sex: Female

DRUGS (2)
  1. ZOLEDRONIC ACID [Suspect]
     Dates: start: 20100901
  2. ZOLEDRONIC ACID [Suspect]
     Indication: OSTEOPOROSIS
     Dates: start: 20090528

REACTIONS (1)
  - LUNG NEOPLASM MALIGNANT [None]
